FAERS Safety Report 5892820-1 (Version None)
Quarter: 2008Q3

REPORT INFORMATION
  Report Type: 
  Country: None (occurrence: None)
  Receive Date: 20080922
  Receipt Date: 20080922
  Transmission Date: 20090109
  Serious: No
  Sender: FDA-Public Use
  Company Number: None

PATIENT
  Sex: Female
  Weight: 99.7913 kg

DRUGS (1)
  1. YAZ [Suspect]
     Indication: UTERINE LEIOMYOMA
     Dosage: 3 MG/.02 MG DAILY PO
     Route: 048
     Dates: start: 20070915, end: 20080701

REACTIONS (5)
  - BREAST ENLARGEMENT [None]
  - BREAST PAIN [None]
  - BREAST SWELLING [None]
  - METRORRHAGIA [None]
  - WEIGHT INCREASED [None]
